FAERS Safety Report 5631921-X (Version None)
Quarter: 2008Q1

REPORT INFORMATION
  Report Type: 
  Country: None (occurrence: None)
  Receive Date: 20080220
  Receipt Date: 20080207
  Transmission Date: 20080703
  Serious: Yes (Other)
  Sender: FDA-Public Use
  Company Number: NL-AMGEN-UK251041

PATIENT
  Sex: Female
  Weight: 61 kg

DRUGS (7)
  1. NEULASTA [Suspect]
     Indication: CHEMOTHERAPY
     Route: 058
     Dates: start: 20070907, end: 20071019
  2. NEUPOGEN [Suspect]
     Indication: CHEMOTHERAPY
     Route: 058
     Dates: start: 20071101, end: 20071109
  3. DEXAMETHASONE TAB [Concomitant]
  4. DOXORUBICIN HCL [Concomitant]
     Route: 065
  5. CYCLOPHOSPHAMIDE [Concomitant]
     Route: 042
     Dates: start: 20070906, end: 20071018
  6. ADRIAMYCIN PFS [Concomitant]
     Route: 042
     Dates: start: 20070916, end: 20071018
  7. CO-TRIMOXAZOLE [Concomitant]
     Route: 048
     Dates: start: 20071004, end: 20071018

REACTIONS (2)
  - ORAL CANDIDIASIS [None]
  - PALMAR-PLANTAR ERYTHRODYSAESTHESIA SYNDROME [None]
